FAERS Safety Report 7341052-9 (Version None)
Quarter: 2011Q1

REPORT INFORMATION
  Report Type: 
  Country: None (occurrence: None)
  Receive Date: 20110309
  Receipt Date: 20110225
  Transmission Date: 20110831
  Serious: Yes (Life-Threatening, Hospitalization)
  Sender: FDA-Public Use
  Company Number: JP-CELGENEUS-087-21880-10111551

PATIENT
  Sex: Male
  Weight: 60 kg

DRUGS (11)
  1. LENADEX [Suspect]
     Dosage: 20 MILLIGRAM
     Route: 048
     Dates: start: 20110105, end: 20110108
  2. OXYCONTIN [Concomitant]
     Indication: PAIN
     Dosage: 20 MILLIGRAM
     Route: 048
     Dates: start: 20100315
  3. REVLIMID [Suspect]
     Indication: MULTIPLE MYELOMA
     Dosage: 25 MILLIGRAM
     Route: 048
     Dates: start: 20101021, end: 20101110
  4. GASTER D [Concomitant]
     Indication: PROPHYLAXIS
     Dosage: 20 MILLIGRAM
     Route: 048
     Dates: start: 20050215
  5. VOLTAREN [Concomitant]
     Dosage: 100 MILLIGRAM
     Route: 065
     Dates: start: 20091119, end: 20101124
  6. REVLIMID [Suspect]
     Dosage: 10 MILLIGRAM
     Route: 048
     Dates: start: 20101118, end: 20101124
  7. LENADEX [Suspect]
     Indication: MULTIPLE MYELOMA
     Dosage: 40 MILLIGRAM
     Route: 048
     Dates: start: 20101021, end: 20101024
  8. LENADEX [Suspect]
     Dosage: 40 MILLIGRAM
     Route: 048
     Dates: start: 20101119, end: 20101122
  9. MAGLAX [Concomitant]
     Dosage: 990 MILLIGRAM
     Route: 048
     Dates: start: 20080131, end: 20101124
  10. REVLIMID [Suspect]
     Dosage: 10 MILLIGRAM
     Route: 048
     Dates: start: 20110105, end: 20110125
  11. MAGLAX [Concomitant]
     Dosage: 990 MILLIGRAM
     Route: 048
     Dates: start: 20101228

REACTIONS (16)
  - GASTROINTESTINAL PERFORATION [None]
  - NEUTROPHIL COUNT DECREASED [None]
  - PYREXIA [None]
  - ABDOMINAL PAIN [None]
  - SOMNOLENCE [None]
  - SEPSIS [None]
  - DIZZINESS [None]
  - C-REACTIVE PROTEIN INCREASED [None]
  - RASH [None]
  - STOMATITIS [None]
  - MALAISE [None]
  - DIARRHOEA [None]
  - PERITONITIS [None]
  - HEPATIC FUNCTION ABNORMAL [None]
  - NAUSEA [None]
  - PLATELET COUNT DECREASED [None]
